FAERS Safety Report 18236426 (Version 2)
Quarter: 2020Q3

REPORT INFORMATION
  Report Type: Spontaneous
  Country: US (occurrence: US)
  Receive Date: 20200907
  Receipt Date: 20200915
  Transmission Date: 20201103
  Serious: Yes (Other)
  Sender: FDA-Public Use
  Company Number: US-AUROBINDO-AUR-APL-2020-046588

PATIENT
  Age: 42 Year
  Sex: Male

DRUGS (4)
  1. HYDROXYZINE [Concomitant]
     Active Substance: HYDROXYZINE HYDROCHLORIDE
     Indication: ANXIETY
     Dosage: 25 MILLIGRAM, 3 TIMES A DAY
     Route: 065
  2. ATOMOXETINE. [Suspect]
     Active Substance: ATOMOXETINE HYDROCHLORIDE
     Dosage: 10 MILLIGRAM, ONCE A DAY
     Route: 048
  3. ATOMOXETINE. [Suspect]
     Active Substance: ATOMOXETINE HYDROCHLORIDE
     Indication: ATTENTION DEFICIT HYPERACTIVITY DISORDER
     Dosage: 40 MILLIGRAM, ONCE A DAY
     Route: 065
  4. QUETIAPINE. [Concomitant]
     Active Substance: QUETIAPINE
     Indication: AFFECTIVE DISORDER
     Dosage: 50 MILLIGRAM, ONCE A DAY (NIGHTLY)
     Route: 065

REACTIONS (7)
  - Urinary hesitation [Recovered/Resolved]
  - Penile pain [Recovered/Resolved]
  - Back pain [Recovered/Resolved]
  - Urinary retention [Recovered/Resolved]
  - Pollakiuria [Recovered/Resolved]
  - Penile discharge [Recovered/Resolved]
  - Dysuria [Recovered/Resolved]
